FAERS Safety Report 19041984 (Version 9)
Quarter: 2023Q1

REPORT INFORMATION
  Report Type: Spontaneous
  Country: US (occurrence: US)
  Receive Date: 20210323
  Receipt Date: 20230320
  Transmission Date: 20230418
  Serious: Yes (Hospitalization, Other)
  Sender: FDA-Public Use
  Company Number: US-GLAXOSMITHKLINE-US2021AMR066225

PATIENT

DRUGS (5)
  1. ZEJULA [Suspect]
     Active Substance: NIRAPARIB
     Indication: Ovarian cancer
     Dosage: 200 MG, QD
     Route: 048
     Dates: start: 20210312
  2. ZEJULA [Suspect]
     Active Substance: NIRAPARIB
     Dosage: 100 MG, QD
  3. BREO ELLIPTA [Concomitant]
     Active Substance: FLUTICASONE FUROATE\VILANTEROL TRIFENATATE
     Indication: Product used for unknown indication
     Dosage: UNK, AEROSOL
  4. MIRALAX [Concomitant]
     Active Substance: POLYETHYLENE GLYCOL 3350
     Indication: Product used for unknown indication
     Dosage: UNK
  5. COLACE [Concomitant]
     Active Substance: DOCUSATE SODIUM
     Indication: Product used for unknown indication
     Dosage: UNK

REACTIONS (21)
  - Platelet count decreased [Recovered/Resolved]
  - Complication associated with device [Unknown]
  - Recurrent cancer [Unknown]
  - Muscle spasms [Unknown]
  - Diarrhoea [Recovered/Resolved]
  - Stoma site pain [Unknown]
  - Fatigue [Not Recovered/Not Resolved]
  - Flatulence [Unknown]
  - Feeling abnormal [Unknown]
  - Malaise [Recovered/Resolved]
  - Headache [Recovered/Resolved]
  - Stoma site discharge [Unknown]
  - Stomal hernia [Not Recovered/Not Resolved]
  - Vertigo [Unknown]
  - Gastrointestinal sounds abnormal [Unknown]
  - Stoma closure [Unknown]
  - Abdominal distension [Unknown]
  - Wound infection [Unknown]
  - Circadian rhythm sleep disorder [Not Recovered/Not Resolved]
  - Ileostomy closure [Unknown]
  - Wound [Unknown]

NARRATIVE: CASE EVENT DATE: 20210601
